FAERS Safety Report 8924272 (Version 1)
Quarter: 2012Q4

REPORT INFORMATION
  Report Type: Spontaneous
  Country: US (occurrence: None)
  Receive Date: 20121121
  Receipt Date: 20121121
  Transmission Date: 20130627
  Serious: Yes (Hospitalization)
  Sender: FDA-Public Use
  Company Number: None

PATIENT
  Age: 62 Year
  Sex: Male
  Weight: 83.8 kg

DRUGS (1)
  1. DIVALPROEX [Suspect]
     Indication: SCHIZO-AFFECTIVE TYPE SCHIZOPHRENIA, CHRONIC STATE
     Route: 048
     Dates: start: 20021122, end: 20071030

REACTIONS (20)
  - Pancreatitis [None]
  - Abdominal pain lower [None]
  - Decreased appetite [None]
  - Fatigue [None]
  - Hypersomnia [None]
  - Orthostatic hypotension [None]
  - Lobar pneumonia [None]
  - Oedema [None]
  - Hyperhidrosis [None]
  - Blood chloride decreased [None]
  - Blood glucose increased [None]
  - Blood albumin decreased [None]
  - Atelectasis [None]
  - Renal disorder [None]
  - Computerised tomogram abdomen abnormal [None]
  - Splenic lesion [None]
  - Hyponatraemia [None]
  - Inappropriate antidiuretic hormone secretion [None]
  - Hypovolaemia [None]
  - White blood cell count increased [None]
